FAERS Safety Report 6392033-3 (Version None)
Quarter: 2009Q4

REPORT INFORMATION
  Report Type: 
  Country: None (occurrence: None)
  Receive Date: 20091007
  Receipt Date: 20090928
  Transmission Date: 20100525
  Serious: Yes (Hospitalization, Other)
  Sender: FDA-Public Use
  Company Number: US-ROCHE-659419

PATIENT
  Age: 87 Year
  Sex: Female

DRUGS (2)
  1. BONIVA [Suspect]
     Indication: OSTEOPOROSIS
     Dosage: RECEIVED TWO SUBSEQUENT DOSES ON 27 SEP 2009 AND 28 SEP 2009.
     Route: 048
     Dates: start: 20080401
  2. THYROID TAB [Concomitant]

REACTIONS (5)
  - CHEST PAIN [None]
  - FALL [None]
  - INAPPROPRIATE SCHEDULE OF DRUG ADMINISTRATION [None]
  - MYALGIA [None]
  - NO ADVERSE EVENT [None]
